FAERS Safety Report 13656064 (Version 1)
Quarter: 2017Q2

REPORT INFORMATION
  Report Type: Spontaneous
  Country: US (occurrence: US)
  Receive Date: 20170615
  Receipt Date: 20170615
  Transmission Date: 20170830
  Serious: No
  Sender: FDA-Public Use
  Company Number: US-SHIRE-US201713071

PATIENT
  Age: 81 Year
  Sex: Female

DRUGS (2)
  1. ALREX                              /00595201/ [Concomitant]
     Active Substance: ALPRAZOLAM
     Indication: DRY EYE
     Dosage: 1 GTT, 3X/DAY:TID
     Route: 047
  2. XIIDRA [Suspect]
     Active Substance: LIFITEGRAST
     Indication: DRY EYE
     Dosage: 1 GTT, 2X/DAY:BID
     Route: 047
     Dates: start: 20170608

REACTIONS (2)
  - Inappropriate schedule of drug administration [Recovered/Resolved]
  - Instillation site pain [Recovered/Resolved]

NARRATIVE: CASE EVENT DATE: 20170608
